FAERS Safety Report 13020684 (Version 1)
Quarter: 2016Q4

REPORT INFORMATION
  Report Type: Other
  Country: QA (occurrence: QA)
  Receive Date: 20161212
  Receipt Date: 20161212
  Transmission Date: 20170207
  Serious: Yes (Other)
  Sender: FDA-Public Use
  Company Number: QA-EMD SERONO-8125379

PATIENT
  Age: 4 Decade
  Sex: Male

DRUGS (3)
  1. CLOMIPHENE CITRATE. [Suspect]
     Active Substance: CLOMIPHENE CITRATE
     Indication: SPERMATOZOA PROGRESSIVE MOTILITY DECREASED
  2. CLOMIPHENE CITRATE. [Suspect]
     Active Substance: CLOMIPHENE CITRATE
     Indication: SPERM CONCENTRATION DECREASED
     Route: 048
  3. CAPTOPRIL. [Concomitant]
     Active Substance: CAPTOPRIL
     Indication: HYPERTENSION

REACTIONS (2)
  - Intracranial venous sinus thrombosis [Recovering/Resolving]
  - Off label use [Unknown]
